FAERS Safety Report 21591549 (Version 1)
Quarter: 2022Q4

REPORT INFORMATION
  Report Type: Report from Study
  Country: US (occurrence: US)
  Receive Date: 20221114
  Receipt Date: 20221114
  Transmission Date: 20230112
  Serious: No
  Sender: FDA-Public Use
  Company Number: US-ABBVIE-4153584

PATIENT
  Age: 35 Year
  Sex: Female

DRUGS (1)
  1. HUMIRA [Suspect]
     Active Substance: ADALIMUMAB
     Indication: Hidradenitis
     Dosage: CF
     Route: 058

REACTIONS (2)
  - Paranasal sinus discomfort [Not Recovered/Not Resolved]
  - Otorrhoea [Not Recovered/Not Resolved]

NARRATIVE: CASE EVENT DATE: 20220901
